FAERS Safety Report 8438771-X (Version None)
Quarter: 2012Q2

REPORT INFORMATION
  Report Type: 
  Country: None (occurrence: None)
  Receive Date: 20120605
  Receipt Date: 20120527
  Transmission Date: 20120825
  Serious: Yes (Other)
  Sender: FDA-Public Use
  Company Number: 2012SP008770

PATIENT
  Sex: Female

DRUGS (3)
  1. VICTRELIS [Suspect]
     Indication: HEPATITIS C
     Dates: start: 20120302, end: 20120525
  2. PEG-INTRON [Suspect]
     Indication: HEPATITIS C
     Dates: start: 20120203, end: 20120525
  3. RIBAVIRIN [Suspect]
     Indication: HEPATITIS C
     Dates: start: 20120203, end: 20120525

REACTIONS (9)
  - ARTHRALGIA [None]
  - RED BLOOD CELL COUNT DECREASED [None]
  - BACK PAIN [None]
  - RASH GENERALISED [None]
  - INJECTION SITE PRURITUS [None]
  - POLLAKIURIA [None]
  - THYROID DISORDER [None]
  - INJECTION SITE ERYTHEMA [None]
  - LUNG NEOPLASM MALIGNANT [None]
